FAERS Safety Report 8309084-1 (Version None)
Quarter: 2012Q2

REPORT INFORMATION
  Report Type: 
  Country: None (occurrence: None)
  Receive Date: 20120424
  Receipt Date: 20120418
  Transmission Date: 20120825
  Serious: Yes (Death)
  Sender: FDA-Public Use
  Company Number: US-CELGENEUS-163-21880-12042294

PATIENT
  Sex: Female
  Weight: 60.836 kg

DRUGS (6)
  1. REVLIMID [Suspect]
     Indication: MULTIPLE MYELOMA
     Dosage: 10 MILLIGRAM
     Route: 048
     Dates: start: 20111129, end: 20120307
  2. REGLAN [Concomitant]
     Dosage: 10 MILLIGRAM
     Route: 065
  3. VALTREX [Concomitant]
     Dosage: 500 MILLIGRAM
     Route: 065
  4. VITAMIN D [Concomitant]
     Dosage: 1000 UNIT
     Route: 065
  5. CALCIUM 600 + D [Concomitant]
     Route: 065
  6. ASPIRIN [Concomitant]
     Dosage: 81 MILLIGRAM
     Route: 065

REACTIONS (1)
  - DEATH [None]
